FAERS Safety Report 9587785 (Version 1)
Quarter: 2013Q4

REPORT INFORMATION
  Report Type: Report from Study
  Country: US (occurrence: US)
  Receive Date: 20131003
  Receipt Date: 20131003
  Transmission Date: 20140711
  Serious: Yes (Other)
  Sender: FDA-Public Use
  Company Number: US-ROCHE-1284114

PATIENT
  Sex: 0

DRUGS (2)
  1. ALTEPLASE [Suspect]
     Indication: RUPTURED CEREBRAL ANEURYSM
     Dosage: INTRAVENTRICULAR
     Route: 050
  2. ALTEPLASE [Suspect]
     Dosage: NON INTRAVENTRICULAR
     Route: 050

REACTIONS (2)
  - CNS ventriculitis [Unknown]
  - Fungal test positive [Unknown]
